FAERS Safety Report 18379212 (Version 1)
Quarter: 2020Q4

REPORT INFORMATION
  Report Type: Report from Study
  Country: US (occurrence: US)
  Receive Date: 20201013
  Receipt Date: 20201013
  Transmission Date: 20210114
  Serious: Yes (Other)
  Sender: FDA-Public Use
  Company Number: US-JNJFOC-20201004410

PATIENT
  Age: 73 Year
  Sex: Female

DRUGS (1)
  1. SELEXIPAG [Suspect]
     Active Substance: SELEXIPAG
     Indication: PULMONARY ARTERIAL HYPERTENSION
     Route: 048
     Dates: start: 20190703

REACTIONS (3)
  - Clumsiness [Unknown]
  - Patella fracture [Unknown]
  - Fall [Unknown]

NARRATIVE: CASE EVENT DATE: 202009
